FAERS Safety Report 8364467-9 (Version None)
Quarter: 2012Q2

REPORT INFORMATION
  Report Type: 
  Country: None (occurrence: None)
  Receive Date: 20120516
  Receipt Date: 20120504
  Transmission Date: 20120825
  Serious: Yes (Hospitalization)
  Sender: FDA-Public Use
  Company Number: DK-JNJFOC-20120212944

PATIENT
  Sex: Male

DRUGS (10)
  1. METHOTREXATE [Suspect]
     Indication: RHEUMATOID ARTHRITIS
     Route: 065
     Dates: start: 20061017, end: 20101130
  2. ENALAPRIL MALEATE [Concomitant]
     Route: 065
     Dates: start: 20080101
  3. FOLIMET [Concomitant]
     Route: 065
  4. CALCIUM [Concomitant]
     Indication: NUTRITIONAL SUPPORT
     Route: 065
  5. REMICADE [Suspect]
     Indication: RHEUMATOID ARTHRITIS
     Route: 042
     Dates: start: 20061017, end: 20101130
  6. WARFARIN SODIUM [Concomitant]
     Route: 065
     Dates: start: 20110301
  7. VITAMIN D [Concomitant]
     Indication: NUTRITIONAL SUPPORT
     Route: 065
  8. CENTYL [Concomitant]
     Route: 065
     Dates: start: 20080101
  9. SULFASALAZINE [Concomitant]
     Route: 065
     Dates: start: 20050101
  10. ALLOPURINOL [Concomitant]
     Route: 065
     Dates: start: 20050101

REACTIONS (2)
  - BLADDER CANCER [None]
  - PULMONARY EMBOLISM [None]
